FAERS Safety Report 5583731-X (Version None)
Quarter: 2008Q1

REPORT INFORMATION
  Report Type: 
  Country: None (occurrence: None)
  Receive Date: 20080102
  Receipt Date: 20071220
  Transmission Date: 20080703
  Serious: Yes (Life-Threatening)
  Sender: FDA-Public Use
  Company Number: 2007AL005474

PATIENT
  Age: 45 Year
  Sex: Male

DRUGS (4)
  1. DICLOFENAC SODIUM [Suspect]
     Dosage: PRN; PO
     Route: 048
     Dates: start: 20071210
  2. WARFARIN SODIUM [Concomitant]
  3. BECLOMETHASONE DIPROPIONATE [Concomitant]
  4. ALBUTEROL [Concomitant]

REACTIONS (1)
  - INTERNATIONAL NORMALISED RATIO INCREASED [None]
